FAERS Safety Report 6685396-2 (Version None)
Quarter: 2010Q2

REPORT INFORMATION
  Report Type: 
  Country: None (occurrence: None)
  Receive Date: 20100416
  Receipt Date: 20100224
  Transmission Date: 20101027
  Serious: No
  Sender: FDA-Public Use
  Company Number: US-AMGEN-KDL395028

PATIENT
  Sex: Female

DRUGS (2)
  1. SENSIPAR [Suspect]
     Indication: DRUG USE FOR UNKNOWN INDICATION
     Dates: start: 20090201
  2. INSULIN [Concomitant]

REACTIONS (2)
  - DYSPHAGIA [None]
  - ENTERAL NUTRITION [None]
